FAERS Safety Report 9189733 (Version 5)
Quarter: 2013Q3

REPORT INFORMATION
  Report Type: Spontaneous
  Country: US (occurrence: US)
  Receive Date: 20130326
  Receipt Date: 20130916
  Transmission Date: 20140515
  Serious: Yes (Hospitalization)
  Sender: FDA-Public Use
  Company Number: US-BAYER-2013-037571

PATIENT
  Age: 29 Year
  Sex: Female

DRUGS (4)
  1. YAZ [Suspect]
     Indication: ACNE
     Dosage: UNK
     Dates: start: 2008, end: 2010
  2. ARIPIPRAZOLE [Concomitant]
  3. TOPAMAX [Concomitant]
  4. ZOLOFT [Concomitant]

REACTIONS (3)
  - Cerebrovascular accident [None]
  - Pain [None]
  - Pain [None]
